FAERS Safety Report 11909622 (Version 1)
Quarter: 2016Q1

REPORT INFORMATION
  Report Type: Spontaneous
  Country: US (occurrence: None)
  Receive Date: 20160108
  Receipt Date: 20160108
  Transmission Date: 20160526
  Serious: Yes (Hospitalization, Other)
  Sender: FDA-Public Use
  Company Number: 002037424A

PATIENT
  Age: 55 Year
  Sex: Female

DRUGS (2)
  1. PROACTIV RENEWING CLEANSER [Suspect]
     Active Substance: BENZOYL PEROXIDE
     Indication: ACNE
     Dosage: DERMAL QD THEN QOD
     Dates: start: 20151102, end: 20151205
  2. PROACTIV REPAIRING TREATMENT [Suspect]
     Active Substance: BENZOYL PEROXIDE
     Indication: ACNE
     Dosage: DERMAL QD THEN QOD
     Dates: start: 20151102, end: 20151205

REACTIONS (6)
  - Skin exfoliation [None]
  - Dyspnoea [None]
  - Rash [None]
  - Burning sensation [None]
  - Swelling [None]
  - Drug hypersensitivity [None]

NARRATIVE: CASE EVENT DATE: 20151205
